FAERS Safety Report 23999769 (Version 1)
Quarter: 2024Q2

REPORT INFORMATION
  Report Type: Report from Study
  Country: US (occurrence: US)
  Receive Date: 20240621
  Receipt Date: 20240621
  Transmission Date: 20240716
  Serious: Yes (Other)
  Sender: FDA-Public Use
  Company Number: US-002147023-NVSC2021US140053

PATIENT
  Age: 17 Year
  Sex: Female
  Weight: 58.957 kg

DRUGS (7)
  1. TREPROSTINIL [Suspect]
     Active Substance: TREPROSTINIL
     Dosage: 99 NG/KG/ MIN, CONT
     Route: 058
  2. TREPROSTINIL [Suspect]
     Active Substance: TREPROSTINIL
     Indication: Pulmonary arterial hypertension
     Dosage: UNK (16 NG/KG/MIN) (FREQUENCY: CONT)
     Route: 058
     Dates: start: 20210607
  3. TREPROSTINIL [Suspect]
     Active Substance: TREPROSTINIL
     Dosage: UNK (29 NG/KG/MIN)
     Route: 058
  4. TREPROSTINIL [Suspect]
     Active Substance: TREPROSTINIL
     Dosage: 63 NG/KG/MIN, CONT
     Route: 058
  5. TREPROSTINIL [Suspect]
     Active Substance: TREPROSTINIL
     Dosage: CONT, (57 NG/KG/MIN)
     Route: 058
  6. TREPROSTINIL [Suspect]
     Active Substance: TREPROSTINIL
     Dosage: 57 NG/KG/MIN
     Route: 058
  7. SILDENAFIL CITRATE [Concomitant]
     Active Substance: SILDENAFIL CITRATE
     Indication: Product used for unknown indication
     Dosage: UNK
     Route: 065

REACTIONS (16)
  - Syncope [Unknown]
  - Loss of consciousness [Unknown]
  - Loss of consciousness [Unknown]
  - Vision blurred [Unknown]
  - Dysmenorrhoea [Unknown]
  - Pain [Unknown]
  - Oropharyngeal pain [Unknown]
  - Seasonal allergy [Unknown]
  - Heart rate increased [Unknown]
  - Dyspnoea exertional [Unknown]
  - Injection site pain [Unknown]
  - Myalgia [Unknown]
  - Pain in jaw [Unknown]
  - Arthralgia [Unknown]
  - Headache [Unknown]
  - Injection site induration [Unknown]

NARRATIVE: CASE EVENT DATE: 20240617
